FAERS Safety Report 24994383 (Version 1)
Quarter: 2025Q1

REPORT INFORMATION
  Report Type: Spontaneous
  Country: US (occurrence: None)
  Receive Date: 20250220
  Receipt Date: 20250220
  Transmission Date: 20250409
  Serious: Yes (Life-Threatening, Hospitalization)
  Sender: FDA-CTU
  Company Number: None

PATIENT
  Age: 75 Year
  Weight: 68 kg

DRUGS (3)
  1. DIVALPROEX SODIUM [Suspect]
     Active Substance: DIVALPROEX SODIUM
     Indication: Bipolar disorder
     Dates: end: 20241227
  2. LAMOTRIGINE [Suspect]
     Active Substance: LAMOTRIGINE
     Indication: Bipolar disorder
     Dosage: FREQUENCY : AT BEDTIME;?
     Route: 048
     Dates: end: 20241227
  3. LAMOTRIGINE [Suspect]
     Active Substance: LAMOTRIGINE
     Indication: Affective disorder

REACTIONS (5)
  - Decreased appetite [None]
  - Fatigue [None]
  - Pancytopenia [None]
  - Weight decreased [None]
  - Asthenia [None]

NARRATIVE: CASE EVENT DATE: 20241223
